FAERS Safety Report 5180320-6 (Version None)
Quarter: 2006Q4

REPORT INFORMATION
  Report Type: 
  Country: None (occurrence: None)
  Receive Date: 20061219
  Receipt Date: 20060910
  Transmission Date: 20070319
  Serious: No
  Sender: FDA-Public Use
  Company Number: US-AMGEN-KDL193095

PATIENT
  Sex: Female

DRUGS (1)
  1. ENBREL [Suspect]
     Indication: RHEUMATOID ARTHRITIS
     Route: 058
     Dates: start: 20060728

REACTIONS (4)
  - FLUSHING [None]
  - INFECTED INSECT BITE [None]
  - INJECTION SITE REACTION [None]
  - PRURITUS GENERALISED [None]
